FAERS Safety Report 21079471 (Version 3)
Quarter: 2022Q3

REPORT INFORMATION
  Report Type: Spontaneous
  Country: US (occurrence: US)
  Receive Date: 20220714
  Receipt Date: 20220922
  Transmission Date: 20221027
  Serious: Yes (Hospitalization, Other)
  Sender: FDA-Public Use
  Company Number: US-BIOVITRUM-2022US07580

PATIENT
  Age: 32 Year
  Sex: Male

DRUGS (2)
  1. KINERET [Suspect]
     Active Substance: ANAKINRA
     Indication: Still^s disease
     Dates: start: 20190905
  2. KINERET [Suspect]
     Active Substance: ANAKINRA
     Indication: Unevaluable event

REACTIONS (5)
  - Autoimmune disorder [Unknown]
  - Condition aggravated [Unknown]
  - COVID-19 [Unknown]
  - Pain [Unknown]
  - Off label use [Unknown]

NARRATIVE: CASE EVENT DATE: 20190905
